FAERS Safety Report 4544727-X (Version None)
Quarter: 2005Q1

REPORT INFORMATION
  Report Type: 
  Country: None (occurrence: None)
  Receive Date: 20050103
  Receipt Date: 20050103
  Transmission Date: 20050727
  Serious: Yes (Hospitalization)
  Sender: FDA-Public Use
  Company Number: None

PATIENT
  Sex: Male

DRUGS (6)
  1. GEMCITABINE [Suspect]
     Indication: BILE DUCT CANCER
     Dosage: 1200  Q WEEKLY INTRAVENOUS
     Route: 042
     Dates: start: 20040720, end: 20041216
  2. GEMCITABINE [Suspect]
     Indication: METASTASIS
     Dosage: 1200  Q WEEKLY INTRAVENOUS
     Route: 042
     Dates: start: 20040720, end: 20041216
  3. IRINOTECAN [Suspect]
     Indication: BILE DUCT CANCER
     Dosage: 100 Q WEEKLY INTRAVENOUS
     Route: 042
     Dates: start: 20040720, end: 20041216
  4. IRINOTECAN [Suspect]
     Indication: METASTASIS
     Dosage: 100 Q WEEKLY INTRAVENOUS
     Route: 042
     Dates: start: 20040720, end: 20041216
  5. ZOFRAN [Concomitant]
  6. DECADRON [Concomitant]

REACTIONS (1)
  - METASTASES TO LUNG [None]
